FAERS Safety Report 8305436-4 (Version None)
Quarter: 2012Q2

REPORT INFORMATION
  Report Type: 
  Country: None (occurrence: None)
  Receive Date: 20120423
  Receipt Date: 20120419
  Transmission Date: 20120825
  Serious: Yes (Other)
  Sender: FDA-Public Use
  Company Number: PHHY2012GB033248

PATIENT
  Age: 82 Year
  Sex: Female

DRUGS (4)
  1. PROCHLORPERAZINE [Concomitant]
  2. WARFARIN SODIUM [Suspect]
     Indication: ATRIAL FIBRILLATION
     Dosage: UNK
     Route: 048
  3. BEZAFIBRATE [Concomitant]
  4. CANDESARTAN CILEXETIL [Concomitant]

REACTIONS (1)
  - THROMBOCYTOPENIA [None]
